FAERS Safety Report 8851364 (Version 2)
Quarter: 2012Q4

REPORT INFORMATION
  Report Type: 
  Country: US (occurrence: US)
  Receive Date: 20121022
  Receipt Date: 20121108
  Transmission Date: 20130627
  Serious: Yes (Hospitalization)
  Sender: FDA-Public Use
  Company Number: US-AMGEN-USASP2012065776

PATIENT
  Age: 55 Year
  Sex: Female

DRUGS (3)
  1. ENBREL [Suspect]
     Indication: RHEUMATOID ARTHRITIS
     Dosage: 50 mg, qwk
     Dates: start: 20110710
  2. METHOTREXATE [Concomitant]
     Dosage: 0.6 ml, once weekly
  3. ARAVA [Concomitant]
     Dosage: UNK

REACTIONS (5)
  - Pancreatitis [Recovered/Resolved]
  - Hypoaesthesia [Not Recovered/Not Resolved]
  - Restless legs syndrome [Not Recovered/Not Resolved]
  - Alopecia [Not Recovered/Not Resolved]
  - Conjunctivitis infective [Not Recovered/Not Resolved]
